FAERS Safety Report 8620187-4 (Version None)
Quarter: 2012Q3

REPORT INFORMATION
  Report Type: 
  Country: None (occurrence: None)
  Receive Date: 20120824
  Receipt Date: 20120820
  Transmission Date: 20120928
  Serious: Yes (Hospitalization)
  Sender: FDA-Public Use
  Company Number: PHHY2012GB065985

PATIENT
  Age: 83 Year
  Sex: Male

DRUGS (7)
  1. AMLODIPINE [Concomitant]
     Dosage: 5 MG, QD
  2. ASPIRIN [Concomitant]
     Dosage: 75 MG, QD
  3. DONEPEZIL HCL [Suspect]
     Indication: DEMENTIA ALZHEIMER'S TYPE
     Dosage: 10 MG, QD
     Route: 048
     Dates: start: 20120713
  4. CANDESARTAN CILEXETIL [Concomitant]
     Dosage: 2 MG, QD
  5. DONEPEZIL HCL [Suspect]
     Indication: VASCULAR DEMENTIA
  6. PRAVASTATIN [Concomitant]
     Dosage: 20 MG, QD
  7. QUININE SULFATE [Concomitant]
     Dosage: 300 MG, QD

REACTIONS (4)
  - SYNCOPE [None]
  - DIARRHOEA [None]
  - FALL [None]
  - BRADYCARDIA [None]
